FAERS Safety Report 23740761 (Version 1)
Quarter: 2024Q2

REPORT INFORMATION
  Report Type: Other
  Country: US (occurrence: None)
  Receive Date: 20240415
  Receipt Date: 20240415
  Transmission Date: 20240716
  Serious: Yes (Hospitalization)
  Sender: FDA-Public Use
  Company Number: US-ROCHE-3507114

PATIENT
  Age: 70 Year
  Sex: Female

DRUGS (11)
  1. OCREVUS [Suspect]
     Active Substance: OCRELIZUMAB
     Indication: Primary progressive multiple sclerosis
     Dosage: DATE OF TREATMENT: 15/DEC/2020, 19/JAN/2021. MOST RECENT INFUSION WAS ON 27/JUL/2023.
     Route: 042
     Dates: start: 20201215
  2. LEVOTHYROXINE [Concomitant]
     Active Substance: LEVOTHYROXINE\LEVOTHYROXINE SODIUM
  3. MYRBETRIQ [Concomitant]
     Active Substance: MIRABEGRON
  4. CELEBREX [Concomitant]
     Active Substance: CELECOXIB
  5. ALENDRONATE [Concomitant]
     Active Substance: ALENDRONATE SODIUM
  6. DEXILANT [Concomitant]
     Active Substance: DEXLANSOPRAZOLE
  7. BACLOFEN [Concomitant]
     Active Substance: BACLOFEN
  8. DIAZEPAM [Concomitant]
     Active Substance: DIAZEPAM
  9. MAGNESIUM [Concomitant]
     Active Substance: MAGNESIUM
  10. VESICARE [Concomitant]
     Active Substance: SOLIFENACIN SUCCINATE
  11. CALCIUM CITRATE [Concomitant]
     Active Substance: CALCIUM CITRATE

REACTIONS (2)
  - Skin ulcer [Unknown]
  - Wound [Unknown]
